FAERS Safety Report 8480723-8 (Version None)
Quarter: 2012Q2

REPORT INFORMATION
  Report Type: 
  Country: None (occurrence: None)
  Receive Date: 20120626
  Receipt Date: 20120626
  Transmission Date: 20120825
  Serious: No
  Sender: FDA-Public Use
  Company Number: None

PATIENT
  Sex: Female

DRUGS (1)
  1. TARCEVA [Suspect]
     Indication: NEOPLASM MALIGNANT
     Dosage: 150 MG QD PO
     Route: 048
     Dates: start: 20120503, end: 20120625

REACTIONS (6)
  - DYSPNOEA [None]
  - RASH [None]
  - BLISTER [None]
  - COUGH [None]
  - NASAL DRYNESS [None]
  - EPISTAXIS [None]
